FAERS Safety Report 4885223-X (Version None)
Quarter: 2005Q4

REPORT INFORMATION
  Report Type: 
  Country: None (occurrence: None)
  Receive Date: 20051216
  Receipt Date: 20051103
  Transmission Date: 20060501
  Serious: No
  Sender: FDA-Public Use
  Company Number: BDI-007697

PATIENT
  Age: 58 Year
  Sex: Male

DRUGS (2)
  1. MULTIHANCE [Suspect]
     Indication: HEPATIC CIRRHOSIS
     Dosage: 20 ML ONCE IV
     Route: 042
     Dates: start: 20051103, end: 20051103
  2. MULTIHANCE [Suspect]
     Indication: NUCLEAR MAGNETIC RESONANCE IMAGING
     Dosage: 20 ML ONCE IV
     Route: 042
     Dates: start: 20051103, end: 20051103

REACTIONS (1)
  - DIZZINESS [None]
